FAERS Safety Report 17375009 (Version 1)
Quarter: 2020Q1

REPORT INFORMATION
  Report Type: Spontaneous
  Country: US (occurrence: US)
  Receive Date: 20200206
  Receipt Date: 20200206
  Transmission Date: 20200409
  Serious: No
  Sender: FDA-Public Use
  Company Number: US-GLENMARK PHARMACEUTICALS-2019GMK044809

PATIENT

DRUGS (2)
  1. ACAMPROSATE CALCIUM DELAYED RELEASE TABLETS [Suspect]
     Active Substance: ACAMPROSATE CALCIUM
     Indication: ALCOHOL PROBLEM
     Dosage: 333 MG, TID (AS DIRECTED)
     Route: 048
     Dates: start: 20190422, end: 20191101
  2. ATIVAN [Concomitant]
     Active Substance: LORAZEPAM
     Indication: PRODUCT USED FOR UNKNOWN INDICATION
     Dosage: UNK
     Route: 065

REACTIONS (4)
  - Malaise [Recovered/Resolved]
  - Depressed mood [Recovered/Resolved]
  - Anxiety [Recovered/Resolved]
  - Drug withdrawal syndrome [Recovered/Resolved]

NARRATIVE: CASE EVENT DATE: 20191105
